FAERS Safety Report 9483583 (Version 2)
Quarter: 2013Q3

REPORT INFORMATION
  Report Type: Spontaneous
  Country: CA (occurrence: CA)
  Receive Date: 20130828
  Receipt Date: 20130828
  Transmission Date: 20140515
  Serious: Yes (Hospitalization)
  Sender: FDA-Public Use
  Company Number: CA-AMGEN-KDL277600

PATIENT
  Age: 62 Year
  Sex: Male
  Weight: 68.1 kg

DRUGS (2)
  1. ENBREL [Suspect]
     Indication: PSORIASIS
     Dosage: 50 MG, QWK
     Route: 058
     Dates: start: 20071002
  2. ZINC [Concomitant]
     Dosage: UNK UNK, UNK
     Route: 061

REACTIONS (4)
  - Mumps [Unknown]
  - Viral infection [Unknown]
  - Headache [Unknown]
  - Nausea [Unknown]
